FAERS Safety Report 5650851-0 (Version None)
Quarter: 2008Q1

REPORT INFORMATION
  Report Type: 
  Country: None (occurrence: None)
  Receive Date: 20080131
  Receipt Date: 20071214
  Transmission Date: 20080703
  Serious: No
  Sender: FDA-Public Use
  Company Number: US200712003412

PATIENT
  Age: 69 Year
  Sex: Male
  Weight: 76.2 kg

DRUGS (3)
  1. BYETTA [Suspect]
     Indication: TYPE 2 DIABETES MELLITUS
     Dosage: 5 UG, 2/D, SUBCUTANEOUS
     Route: 058
     Dates: start: 20060901
  2. GLIMEPIRIDE [Concomitant]
  3. NOVOLIN R [Concomitant]

REACTIONS (6)
  - BLOOD GLUCOSE INCREASED [None]
  - BLOOD PRESSURE INCREASED [None]
  - FALL [None]
  - GASTROENTERITIS VIRAL [None]
  - URINARY TRACT INFECTION [None]
  - VOMITING [None]
